FAERS Safety Report 6822962-5 (Version None)
Quarter: 2010Q3

REPORT INFORMATION
  Report Type: 
  Country: None (occurrence: None)
  Receive Date: 20100708
  Receipt Date: 20100701
  Transmission Date: 20110219
  Serious: Yes (Hospitalization)
  Sender: FDA-Public Use
  Company Number: A0864644A

PATIENT
  Age: 13 Year
  Sex: Female
  Weight: 50.8 kg

DRUGS (11)
  1. NELARABINE [Suspect]
     Dosage: 650MGM2 CYCLIC
     Route: 042
     Dates: start: 20090130
  2. METHOTREXATE [Suspect]
     Route: 037
  3. CYCLOPHOSPHAMIDE [Suspect]
     Dosage: 1000MGM2 CYCLIC
     Route: 042
  4. CYTARABINE [Suspect]
     Dosage: 75MGM2 CYCLIC
  5. MERCAPTOPURINE [Suspect]
     Dosage: 60MGM2 CYCLIC
     Route: 048
  6. VINCRISTINE [Suspect]
     Dosage: 1.5MGM2 CYCLIC
     Route: 042
  7. PEG-ASPARAGINASE [Suspect]
     Dosage: 2500IU CYCLIC
     Route: 030
  8. RADIATION [Suspect]
  9. LAMICTAL [Suspect]
  10. PREDNISONE [Concomitant]
     Route: 048
     Dates: start: 20090130, end: 20090226
  11. DAUNORUBICIN HCL [Concomitant]
     Dosage: 152MG CUMULATIVE DOSE
     Route: 042
     Dates: start: 20090130

REACTIONS (1)
  - CONVULSION [None]
